FAERS Safety Report 8622950-2 (Version None)
Quarter: 2012Q3

REPORT INFORMATION
  Report Type: 
  Country: None (occurrence: None)
  Receive Date: 20120827
  Receipt Date: 20120822
  Transmission Date: 20120928
  Serious: Yes (Life-Threatening)
  Sender: FDA-Public Use
  Company Number: PHHY2012BR073194

PATIENT
  Sex: Female

DRUGS (5)
  1. AMLODOPINE BESYLATE AND VALSARTAN [Suspect]
     Indication: CARDIAC DISORDER
  2. ATENOLOL [Concomitant]
     Dosage: UNK
  3. AGLUCOSE [Concomitant]
     Indication: DIABETES MELLITUS
     Dosage: UNK
  4. AMLODOPINE BESYLATE AND VALSARTAN [Suspect]
     Indication: BLOOD PRESSURE
     Dosage: 1 TABLET DAILY
     Route: 062
  5. AGLITIL [Concomitant]
     Dosage: UNK

REACTIONS (5)
  - BLOOD POTASSIUM INCREASED [None]
  - BLOOD PRESSURE INADEQUATELY CONTROLLED [None]
  - BLOOD GLUCOSE INCREASED [None]
  - HEADACHE [None]
  - COMA [None]
